FAERS Safety Report 6577975-8 (Version None)
Quarter: 2010Q1

REPORT INFORMATION
  Report Type: 
  Country: None (occurrence: None)
  Receive Date: 20100211
  Receipt Date: 20100203
  Transmission Date: 20100710
  Serious: Yes (Death, Hospitalization, Disabling)
  Sender: FDA-Public Use
  Company Number: CA-BRISTOL-MYERS SQUIBB COMPANY-14934640

PATIENT
  Age: 71 Year
  Sex: Male
  Weight: 64 kg

DRUGS (12)
  1. BLINDED: BRIVANIB ALANINATE [Suspect]
     Indication: COLORECTAL CANCER METASTATIC
     Dosage: INTERRUPTED ON 12 JAN10
     Route: 048
     Dates: start: 20091007
  2. ERBITUX [Suspect]
     Indication: COLORECTAL CANCER METASTATIC
     Dosage: INTERRUPTED ON 07 JAN10
     Route: 042
     Dates: start: 20091007
  3. BLINDED: PLACEBO [Suspect]
     Indication: COLORECTAL CANCER METASTATIC
     Dosage: IV WITH ERBITUX,ORAL WITH BRIVANIB. INTERRUPTED WITH ERBITUX ON 07JAN10,WITH BRIVANIB ON 12JAN10
     Route: 048
     Dates: start: 20091007
  4. HYDRAZIDA [Concomitant]
     Indication: HYPERTENSION
     Dates: start: 20080101
  5. COLACE [Concomitant]
     Indication: CONSTIPATION
     Dates: start: 20090901
  6. EFFEXOR [Concomitant]
     Indication: ANXIETY
     Dates: start: 20090914
  7. HYDROMORPHONE HCL [Concomitant]
     Indication: PAIN
     Dates: start: 20090914
  8. LYRICA [Concomitant]
     Indication: PAIN
     Dates: start: 20090914
  9. SENOKOT [Concomitant]
     Indication: CONSTIPATION
     Dates: start: 20090901
  10. SYNTHROID [Concomitant]
     Indication: HYPOTHYROIDISM
     Dates: start: 20091105
  11. ATENOLOL [Concomitant]
     Indication: HYPERTENSION
     Dates: start: 20090901
  12. MINOCIN [Concomitant]
     Indication: ACNE
     Dates: start: 20091015

REACTIONS (9)
  - ABDOMINAL PAIN [None]
  - CONFUSIONAL STATE [None]
  - DIZZINESS [None]
  - DYSPNOEA [None]
  - FATIGUE [None]
  - HYPOTENSION [None]
  - MALIGNANT NEOPLASM PROGRESSION [None]
  - PANCREATITIS [None]
  - SOMNOLENCE [None]
